FAERS Safety Report 8156332-7 (Version None)
Quarter: 2012Q1

REPORT INFORMATION
  Report Type: 
  Country: None (occurrence: None)
  Receive Date: 20120222
  Receipt Date: 20110830
  Transmission Date: 20120608
  Serious: No
  Sender: FDA-Public Use
  Company Number: US-BRISTOL-MYERS SQUIBB COMPANY-16017626

PATIENT
  Sex: Male

DRUGS (1)
  1. KENALOG-10 [Suspect]
     Indication: ARTHRALGIA
     Dosage: KENALOG 10 UNIT NOS
     Route: 014
     Dates: start: 20110101

REACTIONS (1)
  - RASH [None]
